FAERS Safety Report 5254590-X (Version None)
Quarter: 2007Q1

REPORT INFORMATION
  Report Type: 
  Country: None (occurrence: None)
  Receive Date: 20070302
  Receipt Date: 20070220
  Transmission Date: 20070707
  Serious: Yes (Hospitalization)
  Sender: FDA-Public Use
  Company Number: JP-PFIZER INC-2007013921

PATIENT
  Age: 90 Year
  Sex: Female

DRUGS (2)
  1. ZITHROMAC [Suspect]
     Dosage: DAILY DOSE:500MG
     Route: 048
  2. ALL OTHER THERAPEUTIC PRODUCTS [Concomitant]

REACTIONS (1)
  - SHOCK [None]
